FAERS Safety Report 16323159 (Version 1)
Quarter: 2019Q2

REPORT INFORMATION
  Report Type: Spontaneous
  Country: US (occurrence: US)
  Receive Date: 20190517
  Receipt Date: 20190517
  Transmission Date: 20190711
  Serious: No
  Sender: FDA-Public Use
  Company Number: US-GLAXOSMITHKLINE-US2019082115

PATIENT
  Age: 77 Year
  Sex: Female

DRUGS (2)
  1. TRANSDERM SCOP [Suspect]
     Active Substance: SCOPOLAMINE
     Indication: ATAXIA
     Dosage: UNK
     Dates: start: 2014
  2. TRANSDERM SCOP [Suspect]
     Active Substance: SCOPOLAMINE
     Dosage: UNK
     Dates: start: 2014

REACTIONS (4)
  - Product use in unapproved indication [Unknown]
  - Drug effective for unapproved indication [Unknown]
  - Incorrect product administration duration [Unknown]
  - Off label use [Unknown]
